FAERS Safety Report 15428597 (Version 1)
Quarter: 2018Q3

REPORT INFORMATION
  Report Type: Spontaneous
  Country: US (occurrence: US)
  Receive Date: 20180926
  Receipt Date: 20180926
  Transmission Date: 20181010
  Serious: Yes (Other)
  Sender: FDA-Public Use
  Company Number: US-ROCHE-2188535

PATIENT
  Sex: Female
  Weight: 85.35 kg

DRUGS (9)
  1. KLONOPIN [Suspect]
     Active Substance: CLONAZEPAM
     Indication: EMOTIONAL DISTRESS
     Route: 065
  2. CYTOXAN [Concomitant]
     Active Substance: CYCLOPHOSPHAMIDE
     Indication: GRANULOMATOSIS WITH POLYANGIITIS
  3. KLONOPIN [Suspect]
     Active Substance: CLONAZEPAM
     Indication: NERVOUSNESS
  4. PREDNISONE. [Concomitant]
     Active Substance: PREDNISONE
     Route: 065
  5. CYTOXAN [Concomitant]
     Active Substance: CYCLOPHOSPHAMIDE
     Indication: ANTI-NEUTROPHIL CYTOPLASMIC ANTIBODY POSITIVE VASCULITIS
     Route: 065
  6. RITUXAN [Suspect]
     Active Substance: RITUXIMAB
     Route: 042
     Dates: start: 201702
  7. KLONOPIN [Suspect]
     Active Substance: CLONAZEPAM
     Indication: FEAR
  8. RITUXAN [Suspect]
     Active Substance: RITUXIMAB
     Indication: ANTI-NEUTROPHIL CYTOPLASMIC ANTIBODY POSITIVE VASCULITIS
     Dosage: (MAINTENANCE) HALF DOSE
     Route: 042
     Dates: start: 20180821
  9. RITUXAN [Suspect]
     Active Substance: RITUXIMAB
     Indication: GRANULOMATOSIS WITH POLYANGIITIS
     Route: 042
     Dates: start: 2017

REACTIONS (15)
  - Mental disorder [Unknown]
  - Arthralgia [Unknown]
  - Discomfort [Unknown]
  - Abdominal distension [Unknown]
  - Fatigue [Unknown]
  - Renal impairment [Unknown]
  - Renal failure [Unknown]
  - Foot deformity [Unknown]
  - Swelling [Unknown]
  - Muscle spasms [Unknown]
  - Ankle deformity [Unknown]
  - Eating disorder [Unknown]
  - Finger deformity [Unknown]
  - Nausea [Unknown]
  - Malaise [Unknown]
